FAERS Safety Report 7391530-1 (Version None)
Quarter: 2011Q2

REPORT INFORMATION
  Report Type: 
  Country: None (occurrence: None)
  Receive Date: 20110404
  Receipt Date: 20110328
  Transmission Date: 20111010
  Serious: Yes (Hospitalization)
  Sender: FDA-Public Use
  Company Number: FR-BAYER-2011-027439

PATIENT
  Sex: Male
  Weight: 55 kg

DRUGS (4)
  1. SORAFENIB (RAF KINASE INHIBITOR) [Suspect]
     Indication: HEPATIC NEOPLASM MALIGNANT
     Dosage: 800 MG, QD
     Route: 048
     Dates: start: 20100426
  2. TRAMADOL HCL [Concomitant]
     Dosage: 300 MG, QD
     Route: 042
     Dates: start: 20110128, end: 20110101
  3. ACETAMINOPHEN [Concomitant]
     Indication: MUSCULOSKELETAL CHEST PAIN
     Dosage: 3000 MG, QD
     Route: 048
     Dates: start: 20110125, end: 20110127
  4. TRAMADOL HCL [Concomitant]
     Indication: MUSCULOSKELETAL CHEST PAIN
     Dosage: 400 MG, QD
     Route: 048
     Dates: start: 20110125, end: 20110127

REACTIONS (1)
  - MUSCULOSKELETAL CHEST PAIN [None]
